FAERS Safety Report 12856265 (Version 1)
Quarter: 2016Q4

REPORT INFORMATION
  Report Type: Spontaneous
  Country: BE (occurrence: BE)
  Receive Date: 20161018
  Receipt Date: 20161018
  Transmission Date: 20170207
  Serious: Yes (Other)
  Sender: FDA-Public Use
  Company Number: BE-CIPLA LTD.-2016BE19333

PATIENT

DRUGS (5)
  1. RETROVIR [Suspect]
     Active Substance: ZIDOVUDINE
     Indication: HIV INFECTION
     Dosage: 250 MG, BID
     Route: 065
  2. DIDANOSINE. [Suspect]
     Active Substance: DIDANOSINE
     Indication: HIV INFECTION
     Dosage: UNK
     Route: 065
  3. INDINAVIR/RITONAVIR [Interacting]
     Active Substance: INDINAVIR\RITONAVIR
     Indication: HIV INFECTION
     Dosage: 600/100MG TWICE DAILY
     Route: 065
  4. LAMIVUDINE. [Suspect]
     Active Substance: LAMIVUDINE
     Indication: HIV INFECTION
     Dosage: 150 MG, BID
     Route: 065
  5. TRIAMCINOLONE [Interacting]
     Active Substance: TRIAMCINOLONE
     Indication: PERIARTHRITIS
     Dosage: 40 MG, SINGLE INJECTION IN THE RIGHT SHOULDER
     Route: 014
     Dates: start: 200408

REACTIONS (4)
  - Drug interaction [Unknown]
  - Cushing^s syndrome [Recovered/Resolved]
  - Secondary adrenocortical insufficiency [Recovered/Resolved]
  - Periarthritis [Unknown]

NARRATIVE: CASE EVENT DATE: 200406
